FAERS Safety Report 5561616-2 (Version None)
Quarter: 2007Q4

REPORT INFORMATION
  Report Type: 
  Country: None (occurrence: None)
  Receive Date: 20071215
  Receipt Date: 20071014
  Transmission Date: 20080405
  Serious: No
  Sender: FDA-Public Use
  Company Number: US-AMGEN-KDL247992

PATIENT
  Sex: Female

DRUGS (2)
  1. ENBREL [Suspect]
     Indication: PSORIATIC ARTHROPATHY
     Route: 058
     Dates: start: 20071013
  2. ENBREL [Suspect]
     Indication: DRUG USE FOR UNKNOWN INDICATION

REACTIONS (6)
  - ARTHRALGIA [None]
  - CHEST PAIN [None]
  - MYALGIA [None]
  - PAIN OF SKIN [None]
  - PHARYNGOLARYNGEAL PAIN [None]
  - RHINORRHOEA [None]
